FAERS Safety Report 20290896 (Version 1)
Quarter: 2022Q1

REPORT INFORMATION
  Report Type: Spontaneous
  Country: DE (occurrence: DE)
  Receive Date: 20220104
  Receipt Date: 20220104
  Transmission Date: 20220423
  Serious: Yes (Hospitalization)
  Sender: FDA-Public Use
  Company Number: DE-ROCHE-2986880

PATIENT
  Age: 77 Year
  Sex: Male
  Weight: 85 kg

DRUGS (11)
  1. CYMBALTA [Suspect]
     Active Substance: DULOXETINE HYDROCHLORIDE
     Indication: Adjustment disorder with depressed mood
     Dosage: 30 MG, UNKNOWN
     Route: 065
     Dates: start: 20210407, end: 20210412
  2. TEGRETOL [Suspect]
     Active Substance: CARBAMAZEPINE
     Indication: Neuralgia
     Dosage: UNK UNK, UNKNOWN
     Route: 048
     Dates: start: 20210315, end: 20210316
  3. TEGRETOL [Suspect]
     Active Substance: CARBAMAZEPINE
     Dosage: 400 MG, UNKNOWN
     Route: 048
     Dates: start: 20210317, end: 20210318
  4. TEGRETOL [Suspect]
     Active Substance: CARBAMAZEPINE
     Dosage: 600 MG, UNKNOWN
     Route: 048
     Dates: start: 20210319, end: 20210323
  5. TEGRETOL [Suspect]
     Active Substance: CARBAMAZEPINE
     Dosage: 400 MG, UNKNOWN
     Route: 048
     Dates: start: 20210324, end: 20210412
  6. NOVALGIN (METAMIZOLE SODIUM) [Suspect]
     Active Substance: METAMIZOLE SODIUM
     Indication: Analgesic therapy
     Dosage: 2 G, UNKNOWN
     Route: 065
     Dates: start: 20210315, end: 20210320
  7. DAFALGAN [Suspect]
     Active Substance: ACETAMINOPHEN
     Indication: Analgesic therapy
     Dosage: 2 G, UNKNOWN
     Route: 065
     Dates: start: 20210315, end: 20210321
  8. PREGABALIN [Suspect]
     Active Substance: PREGABALIN
     Indication: Analgesic therapy
     Dosage: 150 MG, DAILY
     Route: 065
     Dates: start: 20210314, end: 20210314
  9. PREGABALIN [Suspect]
     Active Substance: PREGABALIN
     Dosage: 225 MG, DAILY
     Route: 065
     Dates: start: 20210315, end: 20210412
  10. RIVOTRIL [Suspect]
     Active Substance: CLONAZEPAM
     Indication: Product used for unknown indication
     Dosage: 0.5 MG, DAILY
     Route: 048
     Dates: start: 20210316, end: 20210321
  11. XARELTO [Concomitant]
     Active Substance: RIVAROXABAN
     Indication: Product used for unknown indication

REACTIONS (1)
  - Stevens-Johnson syndrome [Recovering/Resolving]

NARRATIVE: CASE EVENT DATE: 20210407
